FAERS Safety Report 11000630 (Version 2)
Quarter: 2016Q2

REPORT INFORMATION
  Report Type: Spontaneous
  Country: US (occurrence: US)
  Receive Date: 20150408
  Receipt Date: 20160412
  Transmission Date: 20160815
  Serious: No
  Sender: FDA-Public Use
  Company Number: US-SA-2014SA138502

PATIENT
  Age: 74 Year
  Sex: Female
  Weight: 81.64 kg

DRUGS (3)
  1. FLONASE [Concomitant]
     Active Substance: FLUTICASONE PROPIONATE
     Indication: MULTIPLE ALLERGIES
     Route: 065
     Dates: start: 201505
  2. ADVAIR DISKUS [Concomitant]
     Active Substance: FLUTICASONE PROPIONATE\SALMETEROL XINAFOATE
     Indication: ASTHMA
     Route: 065
     Dates: start: 1998
  3. ALLEGRA [Suspect]
     Active Substance: FEXOFENADINE HYDROCHLORIDE
     Indication: SINUS DISORDER
     Dosage: YEARS AGO
     Route: 048

REACTIONS (1)
  - Drug ineffective [Unknown]
